FAERS Safety Report 4462395-2 (Version None)
Quarter: 2004Q3

REPORT INFORMATION
  Report Type: 
  Country: None (occurrence: None)
  Receive Date: 20040924
  Receipt Date: 20040917
  Transmission Date: 20050211
  Serious: Yes (Hospitalization)
  Sender: FDA-Public Use
  Company Number: 6010621

PATIENT
  Age: 75 Year
  Sex: Female

DRUGS (6)
  1. LEVOTHYROXINE SODIUM [Suspect]
     Indication: HYPOTHYROIDISM
     Dosage: 1 DOSAGE
     Route: 048
     Dates: start: 20020101
  2. CARDENSTEL (TABLES) (BISOPROLOL) [Suspect]
     Indication: ESSENTIAL HYPERTENSION
     Dosage: 1 DOAGE
     Route: 048
     Dates: start: 20030101
  3. AMIODARONE HYDROCHLORIDE [Suspect]
     Dosage: 2.00 DOSAGE FORMS (1 DOSAGE FORM, 2 IN 1 D)
     Route: 048
     Dates: start: 20030101
  4. ASPIRIN [Suspect]
     Dosage: 1 DOSAGE FORMS
     Route: 048
  5. LANSOPRAZOLE [Suspect]
     Dosage: (15 MG, 1 IN 1 D)
     Route: 048
     Dates: start: 20030901, end: 20031109
  6. IRBESARTAN [Suspect]
     Dosage: 1 DOSAGE FORMS
     Route: 048
     Dates: start: 20030101

REACTIONS (1)
  - COLITIS COLLAGENOUS [None]
